FAERS Safety Report 12305305 (Version 3)
Quarter: 2016Q2

REPORT INFORMATION
  Report Type: Spontaneous
  Country: US (occurrence: US)
  Receive Date: 20160426
  Receipt Date: 20160602
  Transmission Date: 20160815
  Serious: Yes (Hospitalization, Other)
  Sender: FDA-Public Use
  Company Number: US-GLAXOSMITHKLINE-US2016GSK050019

PATIENT
  Sex: Female

DRUGS (2)
  1. FLOLAN [Suspect]
     Active Substance: EPOPROSTENOL SODIUM
     Indication: PULMONARY ARTERIAL HYPERTENSION
     Dosage: 54 NG/KG/MIN CO; CONCENTRATION: 60,000 NG/ML; PUMP RATE: 88 ML/DAY; VIAL STRENGTH: 1.5 MG/ML
     Route: 042
     Dates: start: 20060411
  2. FLOLAN [Suspect]
     Active Substance: EPOPROSTENOL SODIUM
     Dosage: 53.5 NG/KG/MIN, CO
     Route: 042

REACTIONS (7)
  - Heart rate increased [Unknown]
  - Hospitalisation [Not Recovered/Not Resolved]
  - Erythema [Unknown]
  - Drug ineffective [Unknown]
  - Palpitations [Unknown]
  - Drug dose omission [Unknown]
  - Incorrect dose administered by device [Unknown]
